FAERS Safety Report 5733210-1 (Version None)
Quarter: 2008Q2

REPORT INFORMATION
  Report Type: 
  Country: None (occurrence: None)
  Receive Date: 20080509
  Receipt Date: 20080505
  Transmission Date: 20081010
  Serious: Yes (Hospitalization)
  Sender: FDA-Public Use
  Company Number: IT-BAYER-200817869GPV

PATIENT
  Age: 68 Year
  Sex: Male

DRUGS (3)
  1. ACETYLSALICYLIC ACID SRT [Suspect]
     Indication: ANTICOAGULANT THERAPY
     Dosage: TOTAL DAILY DOSE: 100 MG  UNIT DOSE: 100 MG
     Route: 048
     Dates: start: 20070401, end: 20080425
  2. ZESTORETIC [Concomitant]
     Indication: HYPERTENSION
     Dosage: TOTAL DAILY DOSE: 32.5 MG  UNIT DOSE: 32.5 MG
     Route: 048
     Dates: start: 20070401, end: 20080425
  3. ZANEDIP (LERCANIDIPIN) [Concomitant]
     Indication: HYPERTENSION
     Dosage: TOTAL DAILY DOSE: 10 MG  UNIT DOSE: 10 MG
     Route: 048
     Dates: start: 20000101, end: 20080425

REACTIONS (2)
  - GASTRIC ULCER [None]
  - MELAENA [None]
